FAERS Safety Report 9701076 (Version 7)
Quarter: 2014Q1

REPORT INFORMATION
  Report Type: Spontaneous
  Country: US (occurrence: US)
  Receive Date: 20131121
  Receipt Date: 20140327
  Transmission Date: 20141002
  Serious: Yes (Other)
  Sender: FDA-Public Use
  Company Number: US-BAXTER-2013BAX045579

PATIENT
  Sex: Female

DRUGS (13)
  1. DIANEAL LOW CALCIUM [Suspect]
     Indication: RENAL FAILURE CHRONIC
     Route: 033
     Dates: start: 2004, end: 20140109
  2. DIANEAL LOW CALCIUM [Suspect]
     Route: 033
     Dates: start: 20140206
  3. DIANEAL LOW CALCIUM [Suspect]
     Route: 033
  4. DIANEAL LOW CALCIUM [Suspect]
     Route: 033
  5. DIANEAL LOW CALCIUM [Suspect]
     Indication: RENAL FAILURE CHRONIC
     Route: 033
     Dates: start: 2004, end: 20140109
  6. DIANEAL LOW CALCIUM [Suspect]
     Route: 033
     Dates: start: 20140206
  7. DIANEAL LOW CALCIUM [Suspect]
     Route: 033
  8. DIANEAL LOW CALCIUM [Suspect]
     Route: 033
  9. DIANEAL LOW CALCIUM [Suspect]
     Indication: RENAL FAILURE CHRONIC
     Route: 033
     Dates: start: 2004, end: 20140109
  10. DIANEAL LOW CALCIUM [Suspect]
     Route: 033
     Dates: start: 20140206
  11. DIANEAL LOW CALCIUM [Suspect]
     Route: 033
  12. DIANEAL LOW CALCIUM [Suspect]
     Route: 033
  13. DIANEAL LOW CALCIUM (ULTRABAG) [Suspect]
     Indication: RENAL FAILURE CHRONIC
     Route: 033
     Dates: start: 2004, end: 20140109

REACTIONS (5)
  - Hernia [Recovered/Resolved]
  - Peritoneal dialysis complication [Unknown]
  - Condition aggravated [Unknown]
  - Peritonitis [Recovered/Resolved]
  - Peritoneal dialysis complication [Unknown]
